FAERS Safety Report 18530116 (Version 1)
Quarter: 2020Q4

REPORT INFORMATION
  Report Type: Spontaneous
  Country: SE (occurrence: SE)
  Receive Date: 20201120
  Receipt Date: 20201120
  Transmission Date: 20210114
  Serious: Yes (Other)
  Sender: FDA-Public Use
  Company Number: SE-ANIPHARMA-2020-SE-000046

PATIENT
  Age: 73 Year
  Sex: Male

DRUGS (6)
  1. ELIQUIS [Concomitant]
     Active Substance: APIXABAN
     Dosage: UNKNOWN DOSE AND FREQUENCY
     Route: 065
  2. CANDESARTAN CILEXETIL. [Suspect]
     Active Substance: CANDESARTAN CILEXETIL
     Indication: ALBUMINURIA
     Dosage: 4 MG QD
     Route: 048
     Dates: start: 202010, end: 202010
  3. CEFUROXIME. [Concomitant]
     Active Substance: CEFUROXIME
     Dosage: UNKNOWN DOSE AND FREQUENCY
     Route: 065
  4. OMEPRAZOLE. [Concomitant]
     Active Substance: OMEPRAZOLE
     Dosage: UNKNOWN DOSE AND FREQUENCY
     Route: 065
  5. OXYNORM [Concomitant]
     Active Substance: OXYCODONE HYDROCHLORIDE
     Dosage: UNKNOWN DOSE AND FREQUENCY
     Route: 065
  6. ALFADI [Concomitant]
     Route: 065

REACTIONS (3)
  - Pain in extremity [Unknown]
  - Arthralgia [Unknown]
  - Product use in unapproved indication [Recovered/Resolved]

NARRATIVE: CASE EVENT DATE: 202010
